FAERS Safety Report 8955982 (Version 2)
Quarter: 2013Q1

REPORT INFORMATION
  Report Type: Spontaneous
  Country: US (occurrence: US)
  Receive Date: 20121210
  Receipt Date: 20130204
  Transmission Date: 20140127
  Serious: Yes (Other)
  Sender: FDA-Public Use
  Company Number: US-ELI_LILLY_AND_COMPANY-US201211009245

PATIENT
  Sex: Female

DRUGS (7)
  1. PROZAC [Suspect]
     Indication: MAJOR DEPRESSION
     Dosage: 120 MG, QD
     Route: 048
     Dates: start: 1989, end: 201204
  2. CAMPRAL [Concomitant]
  3. LAMOTRIGINE [Concomitant]
  4. FOLIC ACID [Concomitant]
  5. LEVOXYL [Concomitant]
  6. LANSOPRAZOLE [Concomitant]
  7. CLONAZEPAM [Concomitant]

REACTIONS (2)
  - Breast cancer [Recovered/Resolved]
  - Prescribed overdose [Unknown]
